FAERS Safety Report 10050042 (Version 1)
Quarter: 2014Q2

REPORT INFORMATION
  Report Type: Spontaneous
  Country: US (occurrence: US)
  Receive Date: 20140401
  Receipt Date: 20140401
  Transmission Date: 20141212
  Serious: Yes (Other)
  Sender: FDA-Public Use
  Company Number: US-BAYER-2014-046639

PATIENT
  Sex: Female

DRUGS (1)
  1. SKYLA [Suspect]
     Dosage: 14 MCG/24HR, CONT
     Route: 015

REACTIONS (1)
  - Device dislocation [Not Recovered/Not Resolved]
